FAERS Safety Report 7798768-X (Version None)
Quarter: 2011Q4

REPORT INFORMATION
  Report Type: 
  Country: None (occurrence: None)
  Receive Date: 20111006
  Receipt Date: 20110927
  Transmission Date: 20120403
  Serious: Yes (Death, Other)
  Sender: FDA-Public Use
  Company Number: PHHY2011NL87307

PATIENT
  Sex: Male

DRUGS (2)
  1. 5-AMINOSALICYLIC ACID [Suspect]
     Indication: INFLAMMATORY BOWEL DISEASE
     Dosage: UNK UKN, UNK
  2. PREDNISONE [Suspect]
     Indication: INFLAMMATORY BOWEL DISEASE
     Dosage: UNK UKN, UNK

REACTIONS (3)
  - DEATH [None]
  - LYMPHOMA [None]
  - B-CELL LYMPHOMA [None]
